FAERS Safety Report 9779067 (Version 3)
Quarter: 2014Q1

REPORT INFORMATION
  Report Type: Spontaneous
  Country: US (occurrence: US)
  Receive Date: 20131223
  Receipt Date: 20140318
  Transmission Date: 20141002
  Serious: No
  Sender: FDA-Public Use
  Company Number: US-PFIZER INC-2013366503

PATIENT
  Age: 82 Year
  Sex: Male
  Weight: 86.2 kg

DRUGS (5)
  1. LYRICA [Suspect]
     Indication: DIABETIC NEUROPATHY
     Dosage: 50 MG (2X25MG), DAILY
     Route: 048
     Dates: start: 20131003, end: 20131022
  2. LYRICA [Suspect]
     Dosage: 150 MG (3X50MG), DAILY
     Route: 048
     Dates: start: 20131023
  3. LYRICA [Suspect]
     Dosage: 100 MG, 3X/DAY
  4. LYRICA [Suspect]
     Dosage: 25 MG, 3X/DAY
  5. LYRICA [Suspect]
     Dosage: 50 MG, UNK

REACTIONS (3)
  - Vascular calcification [Unknown]
  - Drug ineffective [Unknown]
  - Activities of daily living impaired [Unknown]
